FAERS Safety Report 9450575 (Version 2)
Quarter: 2013Q3

REPORT INFORMATION
  Report Type: Report from Study
  Country: DE (occurrence: DE)
  Receive Date: 20130809
  Receipt Date: 20130819
  Transmission Date: 20140515
  Serious: Yes (Hospitalization)
  Sender: FDA-Public Use
  Company Number: DE-GLAXOSMITHKLINE-B0901479C

PATIENT
  Sex: Male

DRUGS (6)
  1. PAZOPANIB [Suspect]
     Indication: RENAL CELL CARCINOMA
     Dates: start: 20130604
  2. FRAXODI [Suspect]
     Dates: start: 20130628, end: 20130802
  3. RANITIDINE [Concomitant]
     Dates: start: 20130604
  4. SIMVASTATINE [Concomitant]
     Dates: start: 2001
  5. AUGMENTIN [Concomitant]
     Dates: start: 20130729, end: 20130808
  6. METAMUCIL [Concomitant]
     Dates: start: 20130605

REACTIONS (1)
  - Empyema [Recovered/Resolved]
